FAERS Safety Report 4971767-9 (Version None)
Quarter: 2006Q2

REPORT INFORMATION
  Report Type: 
  Country: None (occurrence: None)
  Receive Date: 20060407
  Receipt Date: 20060322
  Transmission Date: 20061013
  Serious: No
  Sender: FDA-Public Use
  Company Number: DSA_27857_2006

PATIENT
  Age: 73 Year
  Sex: Female
  Weight: 48 kg

DRUGS (5)
  1. RENIVACE [Suspect]
     Indication: CARDIAC FAILURE
     Dosage: 2.5 MG Q DAY PO
     Route: 048
     Dates: start: 20021021, end: 20060306
  2. FLOMOX [Suspect]
     Indication: BRONCHITIS
     Dosage: 100 MG TID PO
     Route: 048
     Dates: start: 20060214, end: 20060217
  3. ALDACTONE [Concomitant]
  4. WARFARIN SODIUM [Concomitant]
  5. LANIRAPID [Concomitant]

REACTIONS (5)
  - ANOREXIA [None]
  - BLOOD LACTATE DEHYDROGENASE INCREASED [None]
  - BRONCHITIS [None]
  - DYSPHAGIA [None]
  - HYPERLIPIDAEMIA [None]
